FAERS Safety Report 8379536-7 (Version None)
Quarter: 2012Q2

REPORT INFORMATION
  Report Type: 
  Country: None (occurrence: None)
  Receive Date: 20120523
  Receipt Date: 20120516
  Transmission Date: 20120825
  Serious: Yes (Hospitalization, Other)
  Sender: FDA-Public Use
  Company Number: PR-ABBOTT-12P-131-0927299-00

PATIENT
  Sex: Female
  Weight: 61.744 kg

DRUGS (6)
  1. VITAMIN D [Concomitant]
     Indication: OSTEOPOROSIS
     Route: 048
  2. SYNTHROID [Concomitant]
     Indication: THYROID DISORDER
     Route: 048
  3. DIOVAN [Concomitant]
     Indication: HYPERTENSION
     Route: 048
     Dates: start: 20100101
  4. HUMIRA [Suspect]
     Indication: RHEUMATOID ARTHRITIS
     Dosage: UNKNOWN DOSE, EVERY 15 DAYS
     Route: 058
     Dates: start: 20100101, end: 20111001
  5. AMARYL [Concomitant]
     Indication: DIABETES MELLITUS
     Route: 048
  6. FLOMAX [Concomitant]
     Indication: OSTEOPOROSIS
     Route: 048

REACTIONS (3)
  - BLINDNESS UNILATERAL [None]
  - HYPERTENSION [None]
  - NEOPLASM MALIGNANT [None]
